FAERS Safety Report 25796477 (Version 1)
Quarter: 2025Q3

REPORT INFORMATION
  Report Type: Spontaneous
  Country: US (occurrence: US)
  Receive Date: 20250912
  Receipt Date: 20250912
  Transmission Date: 20251021
  Serious: Yes (Hospitalization)
  Sender: SANOFI AVENTIS
  Company Number: US-SA-2025SA267791

PATIENT
  Sex: Female

DRUGS (1)
  1. DUPIXENT [Suspect]
     Active Substance: DUPILUMAB
     Indication: Asthma
     Dates: end: 202506

REACTIONS (3)
  - Hospitalisation [Unknown]
  - Ocular discomfort [Not Recovered/Not Resolved]
  - Inappropriate schedule of product administration [Unknown]
